FAERS Safety Report 5141587-3 (Version None)
Quarter: 2006Q4

REPORT INFORMATION
  Report Type: 
  Country: None (occurrence: None)
  Receive Date: 20061026
  Receipt Date: 20061016
  Transmission Date: 20070319
  Serious: Yes (Other)
  Sender: FDA-Public Use
  Company Number: 2006119500

PATIENT
  Age: 79 Year
  Sex: Male
  Weight: 87.5442 kg

DRUGS (6)
  1. LIPITOR [Suspect]
     Indication: BLOOD CHOLESTEROL INCREASED
     Dosage: 10 MG (10 MG, 1 IN 1 D), ORAL
     Route: 048
     Dates: start: 20040601, end: 20050801
  2. GLUCOPHAGE [Concomitant]
  3. DIGOXIN [Concomitant]
  4. GLYBURIDE [Concomitant]
  5. METOPROLOL TARTRATE [Concomitant]
  6. BENICAR [Concomitant]

REACTIONS (5)
  - ARTHRITIS [None]
  - ATROPHY [None]
  - DERMATOMYOSITIS [None]
  - MYOPATHY [None]
  - RHABDOMYOLYSIS [None]
